FAERS Safety Report 6672367-5 (Version None)
Quarter: 2010Q2

REPORT INFORMATION
  Report Type: 
  Country: None (occurrence: None)
  Receive Date: 20100408
  Receipt Date: 20100330
  Transmission Date: 20101027
  Serious: Yes (Hospitalization)
  Sender: FDA-Public Use
  Company Number: US-JNJFOC-20100101286

PATIENT
  Age: 80 Year
  Sex: Male
  Weight: 81.65 kg

DRUGS (19)
  1. TYLENOL [Suspect]
     Route: 048
  2. TYLENOL [Suspect]
     Indication: ARTHRITIS
     Route: 048
  3. SPIRONOLACTONE [Concomitant]
     Route: 065
  4. FUROSEMIDE [Concomitant]
     Route: 065
  5. COREG [Concomitant]
     Route: 065
  6. MULTI-VITAMINS [Concomitant]
     Route: 065
  7. METAMUCIL-2 [Concomitant]
     Route: 065
  8. ADVAIR DISKUS 100/50 [Concomitant]
     Route: 065
  9. POTASSIUM [Concomitant]
     Route: 065
  10. VITAMIN D [Concomitant]
     Route: 065
  11. ALL OTHER THERAPEUTIC PRODUCTS [Concomitant]
     Route: 065
  12. ALLOPURINOL [Concomitant]
     Route: 065
  13. ASPIRIN [Concomitant]
     Route: 065
  14. OXYGEN [Concomitant]
     Dosage: 6 HOURS AT A TIME
     Route: 065
  15. FISH OIL [Concomitant]
     Route: 065
  16. CRANBERRY PILL [Concomitant]
     Route: 065
  17. PRESERVISION LUTEIN EYE VITA.+MIN.SUP.SOFTG. [Concomitant]
     Route: 065
  18. SIMVASTATIN [Concomitant]
     Route: 065
  19. INSULIN [Concomitant]
     Indication: DIABETES MELLITUS
     Route: 065

REACTIONS (3)
  - DIARRHOEA [None]
  - MALAISE [None]
  - PRODUCT QUALITY ISSUE [None]
